FAERS Safety Report 5940542-0 (Version None)
Quarter: 2008Q4

REPORT INFORMATION
  Report Type: 
  Country: None (occurrence: None)
  Receive Date: 20081104
  Receipt Date: 20081029
  Transmission Date: 20090506
  Serious: Yes (Death, Hospitalization)
  Sender: FDA-Public Use
  Company Number: FR-MERCK-0810FRA00109

PATIENT
  Age: 75 Year
  Sex: Male

DRUGS (6)
  1. PRIMAXIN [Suspect]
     Indication: OSTEITIS
     Route: 042
     Dates: start: 20080208, end: 20080327
  2. VANCOMYCIN [Suspect]
     Indication: OSTEITIS
     Route: 042
     Dates: start: 20080208, end: 20080319
  3. CIPROFLOXACIN [Suspect]
     Indication: OSTEITIS
     Route: 048
     Dates: start: 20080208, end: 20080326
  4. BISOPROLOL [Concomitant]
     Indication: ATRIAL FIBRILLATION
     Route: 048
     Dates: end: 20080301
  5. HYDROCHLOROTHIAZIDE [Concomitant]
     Indication: HYPERTENSION
     Route: 048
  6. METFORMIN [Concomitant]
     Indication: TYPE 2 DIABETES MELLITUS
     Route: 048

REACTIONS (2)
  - DRUG RASH WITH EOSINOPHILIA AND SYSTEMIC SYMPTOMS [None]
  - LUNG DISORDER [None]
